FAERS Safety Report 6211090-8 (Version None)
Quarter: 2009Q2

REPORT INFORMATION
  Report Type: 
  Country: None (occurrence: None)
  Receive Date: 20090602
  Receipt Date: 20090527
  Transmission Date: 20091009
  Serious: Yes (Hospitalization)
  Sender: FDA-Public Use
  Company Number: FR-BRISTOL-MYERS SQUIBB COMPANY-14641815

PATIENT
  Age: 5 Day
  Sex: Male
  Weight: 1 kg

DRUGS (3)
  1. TOTAPEN INJ [Suspect]
     Route: 042
     Dates: start: 20090313
  2. RETROVIR [Suspect]
     Dosage: 17MAR09  9-17MAR09:2.8MG/12H 20-26MAR09:1.3MG/12H 26MAR-5APR09:1.8MG/12H:ORAL 6APR09:2MG/8H:ORAL
     Route: 042
     Dates: start: 20090308
  3. CLAFORAN [Suspect]
     Route: 042
     Dates: start: 20090313

REACTIONS (3)
  - CEREBRAL HAEMATOMA [None]
  - INTRAVENTRICULAR HAEMORRHAGE [None]
  - THROMBOCYTOPENIA [None]
